FAERS Safety Report 5657729-7 (Version None)
Quarter: 2008Q1

REPORT INFORMATION
  Report Type: 
  Country: None (occurrence: None)
  Receive Date: 20080310
  Receipt Date: 20080307
  Transmission Date: 20080703
  Serious: Yes (Death)
  Sender: FDA-Public Use
  Company Number: JP-BOEHRINGER INGELHEIM GMBH, GERMANY-2008-BP-03569NB

PATIENT
  Age: 64 Year
  Sex: Male

DRUGS (4)
  1. MICARDIS [Suspect]
     Indication: HYPERTENSION
     Route: 048
     Dates: start: 20070305
  2. DICHLOTRIDE [Concomitant]
     Indication: HYPERTENSION
     Route: 048
     Dates: start: 20071214
  3. ALESION [Concomitant]
     Indication: PRURITUS
     Route: 048
     Dates: start: 20071214
  4. GASTER D [Concomitant]
     Indication: GASTRITIS
     Route: 048
     Dates: start: 20071214

REACTIONS (1)
  - MYOCARDIAL INFARCTION [None]
